FAERS Safety Report 5554349-X (Version None)
Quarter: 2007Q4

REPORT INFORMATION
  Report Type: 
  Country: None (occurrence: None)
  Receive Date: 20071213
  Receipt Date: 20070725
  Transmission Date: 20080405
  Serious: No
  Sender: FDA-Public Use
  Company Number: US-AMGEN-KDL229132

PATIENT
  Sex: Female
  Weight: 85.8 kg

DRUGS (2)
  1. ENBREL [Suspect]
     Indication: JUVENILE ARTHRITIS
     Route: 058
     Dates: start: 20070310, end: 20070615
  2. METHOTREXATE [Concomitant]
     Route: 048
     Dates: start: 20060801

REACTIONS (5)
  - ERYTHEMA [None]
  - INJECTION SITE REACTION [None]
  - PRURITUS GENERALISED [None]
  - RASH PAPULAR [None]
  - SKIN BURNING SENSATION [None]
